FAERS Safety Report 8594314-1 (Version None)
Quarter: 2012Q3

REPORT INFORMATION
  Report Type: 
  Country: None (occurrence: None)
  Receive Date: 20120815
  Receipt Date: 20120806
  Transmission Date: 20120928
  Serious: No
  Sender: FDA-Public Use
  Company Number: US-BIOGENIDEC-2012BI007565

PATIENT
  Sex: Female

DRUGS (3)
  1. TYSABRI [Suspect]
     Indication: MULTIPLE SCLEROSIS
     Route: 042
     Dates: start: 20100401, end: 20100723
  2. TYSABRI [Suspect]
     Route: 042
     Dates: start: 20110908
  3. AVONEX [Concomitant]
     Indication: RELAPSING-REMITTING MULTIPLE SCLEROSIS
     Route: 030

REACTIONS (20)
  - COGNITIVE DISORDER [None]
  - DYSPNOEA [None]
  - PAIN IN EXTREMITY [None]
  - CONTUSION [None]
  - LOSS OF CONTROL OF LEGS [None]
  - MUSCLE TWITCHING [None]
  - MUSCLE TIGHTNESS [None]
  - BONE CYST [None]
  - WEIGHT INCREASED [None]
  - FATIGUE [None]
  - JOINT RANGE OF MOTION DECREASED [None]
  - MEMORY IMPAIRMENT [None]
  - DYSPLASIA [None]
  - DYSPHEMIA [None]
  - FACIAL SPASM [None]
  - GENERAL SYMPTOM [None]
  - MIGRAINE WITH AURA [None]
  - DRUG HYPERSENSITIVITY [None]
  - BACK PAIN [None]
  - ARTHRALGIA [None]
